FAERS Safety Report 9678136 (Version 1)
Quarter: 2013Q4

REPORT INFORMATION
  Report Type: Spontaneous
  Country: US (occurrence: US)
  Receive Date: 20131108
  Receipt Date: 20131108
  Transmission Date: 20140711
  Serious: No
  Sender: FDA-Public Use
  Company Number: US-009507513-1311USA001007

PATIENT
  Age: 58 Year
  Sex: Male

DRUGS (8)
  1. JANUMET XR [Suspect]
     Indication: TYPE 2 DIABETES MELLITUS
     Dosage: 50/1000 MG
     Route: 048
     Dates: start: 20131028
  2. XANAX [Concomitant]
     Dosage: UNK
  3. SIMVASTATIN TABLETS, USP [Concomitant]
  4. TEMAZEPAM [Concomitant]
  5. LUNESTA [Concomitant]
  6. GLIPIZIDE [Concomitant]
  7. NIASPAN [Concomitant]
  8. REMERON [Concomitant]
     Route: 048

REACTIONS (1)
  - Drug ineffective [Unknown]
